FAERS Safety Report 19880773 (Version 1)
Quarter: 2021Q3

REPORT INFORMATION
  Report Type: Spontaneous
  Country: US (occurrence: US)
  Receive Date: 20210924
  Receipt Date: 20210924
  Transmission Date: 20211014
  Serious: Yes (Other)
  Sender: FDA-Public Use
  Company Number: US-GILEAD-2021-0549377

PATIENT

DRUGS (2)
  1. TRUVADA [Suspect]
     Active Substance: EMTRICITABINE\TENOFOVIR DISOPROXIL FUMARATE
     Indication: PRODUCT USED FOR UNKNOWN INDICATION
     Dosage: UNK
     Route: 048
     Dates: start: 20100429, end: 20161214
  2. VIREAD [Suspect]
     Active Substance: TENOFOVIR DISOPROXIL FUMARATE
     Indication: PRODUCT USED FOR UNKNOWN INDICATION
     Dosage: UNK
     Route: 048
     Dates: start: 20080616, end: 20100326

REACTIONS (8)
  - Osteopenia [Unknown]
  - Multiple fractures [Unknown]
  - Bone density decreased [Unknown]
  - Renal failure [Unknown]
  - Osteonecrosis [Unknown]
  - Osteoporosis [Unknown]
  - Bone loss [Unknown]
  - Chronic kidney disease [Unknown]
